FAERS Safety Report 6426094-X (Version None)
Quarter: 2009Q4

REPORT INFORMATION
  Report Type: 
  Country: None (occurrence: None)
  Receive Date: 20091103
  Receipt Date: 20091103
  Transmission Date: 20100525
  Serious: Yes (Other)
  Sender: FDA-Public Use
  Company Number: None

PATIENT
  Sex: Female

DRUGS (1)
  1. MACROBID [Suspect]
     Indication: CYSTITIS
     Dosage: 200 MG BID PO
     Route: 048
     Dates: start: 20091022, end: 20091023

REACTIONS (6)
  - ACTIVITIES OF DAILY LIVING IMPAIRED [None]
  - CHILLS [None]
  - DRUG HYPERSENSITIVITY [None]
  - FEELING COLD [None]
  - MALAISE [None]
  - TREMOR [None]
